FAERS Safety Report 6927414-X (Version None)
Quarter: 2010Q3

REPORT INFORMATION
  Report Type: 
  Country: None (occurrence: None)
  Receive Date: 20100817
  Receipt Date: 20100803
  Transmission Date: 20110219
  Serious: No
  Sender: FDA-Public Use
  Company Number: US-B.I. PHARMACEUTICALS,INC./RIDGEFIELD-2010-BP-08844BP

PATIENT
  Sex: Female
  Weight: 81.65 kg

DRUGS (1)
  1. ZANTAC 75 [Suspect]
     Indication: DYSPEPSIA
     Route: 048
     Dates: start: 20100601

REACTIONS (1)
  - DRUG SCREEN POSITIVE [None]
